FAERS Safety Report 14580703 (Version 2)
Quarter: 2018Q1

REPORT INFORMATION
  Report Type: Spontaneous
  Country: US (occurrence: US)
  Receive Date: 20180228
  Receipt Date: 20180309
  Transmission Date: 20180509
  Serious: Yes (Other)
  Sender: FDA-Public Use
  Company Number: US-TEVA-2018-US-855312

PATIENT
  Sex: Male

DRUGS (1)
  1. PROCTO-MED HC [Suspect]
     Active Substance: HYDROCORTISONE
     Route: 065

REACTIONS (4)
  - Drug ineffective [Unknown]
  - Haematochezia [Unknown]
  - Irritability [Unknown]
  - Burning sensation [Unknown]
